FAERS Safety Report 9642232 (Version 1)
Quarter: 2013Q4

REPORT INFORMATION
  Report Type: Spontaneous
  Country: US (occurrence: US)
  Receive Date: 20131024
  Receipt Date: 20131024
  Transmission Date: 20140711
  Serious: Yes (Other)
  Sender: FDA-Public Use
  Company Number: PHHY2013US116006

PATIENT
  Age: 13 Year
  Sex: Male

DRUGS (6)
  1. VANCOMYCIN [Suspect]
     Indication: BLASTOMYCOSIS
     Route: 042
  2. CLINDAMYCIN [Suspect]
     Route: 042
  3. CEFEPIME [Suspect]
     Route: 042
  4. AUGMENTIN [Suspect]
     Indication: CELLULITIS
  5. AUGMENTIN [Suspect]
     Indication: BLASTOMYCOSIS
  6. ITRACONAZOLE [Concomitant]
     Indication: BLASTOMYCOSIS

REACTIONS (3)
  - Tubulointerstitial nephritis [Recovered/Resolved]
  - Renal failure [Recovered/Resolved]
  - Drug level increased [Recovered/Resolved]
